FAERS Safety Report 5582216-4 (Version None)
Quarter: 2007Q4

REPORT INFORMATION
  Report Type: 
  Country: None (occurrence: None)
  Receive Date: 20071130
  Receipt Date: 20070815
  Transmission Date: 20080405
  Serious: No
  Sender: FDA-Public Use
  Company Number: US200705006936

PATIENT
  Age: 45 Year
  Sex: Female
  Weight: 154.2 kg

DRUGS (10)
  1. BYETTA [Suspect]
     Indication: TYPE 2 DIABETES MELLITUS
     Dosage: 5 UG, 2/D, SUBCUTANEOUS ; 10 UG, 2/D, SUBCUTANEOUS
     Route: 058
     Dates: start: 20070401
  2. BYETTA [Suspect]
     Indication: TYPE 2 DIABETES MELLITUS
     Dosage: 5 UG, 2/D, SUBCUTANEOUS ; 10 UG, 2/D, SUBCUTANEOUS
     Route: 058
     Dates: start: 20070508
  3. METFORMIN HCL [Concomitant]
  4. LANTUS [Concomitant]
  5. AVANDIA [Concomitant]
  6. CYMBALTA [Concomitant]
  7. DIOVAN HCT [Concomitant]
  8. ZANAFLEX [Concomitant]
  9. LEXAPRO [Concomitant]
  10. ANTI-DIABETICS [Concomitant]

REACTIONS (12)
  - ABDOMINAL PAIN UPPER [None]
  - BLOOD GLUCOSE INCREASED [None]
  - DIARRHOEA [None]
  - DIZZINESS [None]
  - DYSKINESIA [None]
  - FATIGUE [None]
  - NAUSEA [None]
  - PARAESTHESIA [None]
  - PARAESTHESIA ORAL [None]
  - SINUSITIS [None]
  - WEIGHT DECREASED [None]
  - YAWNING [None]
